FAERS Safety Report 11346960 (Version 1)
Quarter: 2015Q3

REPORT INFORMATION
  Report Type: Spontaneous
  Country: US (occurrence: US)
  Receive Date: 20150803
  Receipt Date: 20150803
  Transmission Date: 20151125
  Serious: Yes (Other)
  Sender: FDA-Public Use
  Company Number: US-ELI_LILLY_AND_COMPANY-US201102004684

PATIENT
  Age: 36 Year
  Sex: Female

DRUGS (4)
  1. ZYPREXA [Suspect]
     Active Substance: OLANZAPINE
     Indication: GENERALISED ANXIETY DISORDER
     Dosage: 10 MG, UNK
     Dates: end: 20110210
  2. KLONOPIN [Concomitant]
     Active Substance: CLONAZEPAM
     Dosage: 3 MG, UNK
  3. LAXATIVES [Concomitant]
     Active Substance: UNSPECIFIED INGREDIENT
  4. DIAZEPAM. [Concomitant]
     Active Substance: DIAZEPAM

REACTIONS (4)
  - Heart rate increased [Unknown]
  - Off label use [Recovered/Resolved]
  - Intestinal obstruction [Unknown]
  - Blood glucose decreased [Unknown]
